FAERS Safety Report 8119855-2 (Version None)
Quarter: 2012Q1

REPORT INFORMATION
  Report Type: 
  Country: None (occurrence: None)
  Receive Date: 20120207
  Receipt Date: 20120201
  Transmission Date: 20120608
  Serious: Yes (Hospitalization)
  Sender: FDA-Public Use
  Company Number: SE-BRISTOL-MYERS SQUIBB COMPANY-14608111

PATIENT
  Age: 42 Year
  Sex: Female

DRUGS (2)
  1. PREDNISOLONE [Concomitant]
     Dosage: TABLET
  2. ORENCIA [Suspect]
     Indication: RHEUMATOID ARTHRITIS
     Route: 042
     Dates: start: 20080117, end: 20081106

REACTIONS (2)
  - ANAEMIA [None]
  - ABDOMINAL PAIN [None]
